FAERS Safety Report 15612269 (Version 3)
Quarter: 2019Q1

REPORT INFORMATION
  Report Type: Spontaneous
  Country: JP (occurrence: JP)
  Receive Date: 20181113
  Receipt Date: 20190327
  Transmission Date: 20190417
  Serious: Yes (Hospitalization, Other)
  Sender: FDA-Public Use
  Company Number: JP-ACTELION-A-CH2018-174624

PATIENT
  Age: 20 Year
  Sex: Male

DRUGS (9)
  1. REVATIO [Concomitant]
     Active Substance: SILDENAFIL CITRATE
  2. OPSUMIT [Concomitant]
     Active Substance: MACITENTAN
  3. ADCIRCA [Concomitant]
     Active Substance: TADALAFIL
  4. FLOLAN [Suspect]
     Active Substance: EPOPROSTENOL SODIUM
     Indication: PULMONARY ARTERIAL HYPERTENSION
     Dosage: UNK
     Route: 042
     Dates: start: 20140212
  5. PREDNISOLONE. [Concomitant]
     Active Substance: PREDNISOLONE
     Indication: C-REACTIVE PROTEIN INCREASED
     Dosage: UNK
     Dates: start: 201606
  6. EPOPROSTENOL ACT [Suspect]
     Active Substance: EPOPROSTENOL
     Indication: PULMONARY ARTERIAL HYPERTENSION
     Dosage: UNK
     Route: 042
     Dates: start: 20140619
  7. OXYGEN. [Concomitant]
     Active Substance: OXYGEN
  8. EPOPROSTENOL ACT [Suspect]
     Active Substance: EPOPROSTENOL
     Dosage: 168 NG/KG, PER MIN
     Route: 042
     Dates: end: 20161228
  9. FLOLAN [Suspect]
     Active Substance: EPOPROSTENOL SODIUM
     Dosage: 168 NG/KG, PER MIN
     Route: 042
     Dates: end: 20140619

REACTIONS (2)
  - Left ventricular hypertrophy [Recovering/Resolving]
  - C-reactive protein increased [Unknown]

NARRATIVE: CASE EVENT DATE: 20160224
